FAERS Safety Report 4430923-9 (Version None)
Quarter: 2004Q3

REPORT INFORMATION
  Report Type: 
  Country: None (occurrence: None)
  Receive Date: 20040823
  Receipt Date: 20020516
  Transmission Date: 20050211
  Serious: Yes (Other)
  Sender: FDA-Public Use
  Company Number: US-MERCK-0205USA02039

PATIENT
  Age: 71 Year
  Sex: Female
  Weight: 72 kg

DRUGS (4)
  1. ASPIRIN [Concomitant]
     Indication: PROPHYLAXIS
     Route: 065
  2. PREMARIN [Concomitant]
     Indication: MENOPAUSE
     Route: 065
     Dates: start: 19720101
  3. VIOXX [Suspect]
     Indication: ARTHRALGIA
     Route: 048
     Dates: start: 19991201, end: 20000201
  4. DIOVAN [Concomitant]
     Indication: HYPERTENSION
     Route: 065

REACTIONS (13)
  - ALOPECIA [None]
  - BLADDER PROLAPSE [None]
  - BLOOD PRESSURE INCREASED [None]
  - CYSTOCELE [None]
  - HEADACHE [None]
  - INJURY [None]
  - LUNG NEOPLASM [None]
  - OVARIAN MASS [None]
  - RECTOCELE [None]
  - SKIN LESION [None]
  - STRESS INCONTINENCE [None]
  - THERAPY NON-RESPONDER [None]
  - VAGINAL PROLAPSE [None]
